FAERS Safety Report 10065027 (Version 1)
Quarter: 2014Q2

REPORT INFORMATION
  Report Type: Spontaneous
  Country: US (occurrence: None)
  Receive Date: 20140407
  Receipt Date: 20140407
  Transmission Date: 20141212
  Serious: Yes (Hospitalization)
  Sender: FDA-Public Use
  Company Number: None

PATIENT
  Age: 70 Year
  Sex: Male

DRUGS (1)
  1. DECITABINE [Suspect]
     Indication: ACUTE MYELOID LEUKAEMIA
     Dosage: 40 MG, EVERY DAY, IV
     Route: 042
     Dates: start: 20131122

REACTIONS (8)
  - Febrile neutropenia [None]
  - Enterococcal bacteraemia [None]
  - Musculoskeletal pain [None]
  - Arthritis bacterial [None]
  - Osteoarthritis [None]
  - Deep vein thrombosis [None]
  - Leukaemic infiltration [None]
  - Bone marrow failure [None]
